FAERS Safety Report 6224548-2 (Version None)
Quarter: 2009Q2

REPORT INFORMATION
  Report Type: 
  Country: None (occurrence: None)
  Receive Date: 20090612
  Receipt Date: 20090323
  Transmission Date: 20091009
  Serious: No
  Sender: FDA-Public Use
  Company Number: US-ABBOTT-09P-163-0564136-00

PATIENT
  Sex: Female
  Weight: 49.94 kg

DRUGS (10)
  1. HUMIRA [Suspect]
     Indication: RHEUMATOID ARTHRITIS
     Route: 058
     Dates: start: 20050101
  2. NEXIUM [Concomitant]
     Indication: GASTROOESOPHAGEAL REFLUX DISEASE
     Route: 048
  3. WELLBUTRIN [Concomitant]
     Indication: DEPRESSION
     Route: 048
  4. WELLBUTRIN [Concomitant]
     Indication: ANXIETY
  5. ASPIRIN [Concomitant]
     Indication: CARDIOVASCULAR EVENT PROPHYLAXIS
     Route: 048
  6. ACCUPRIL [Concomitant]
     Indication: HYPERTENSION
     Route: 058
     Dates: start: 20090320
  7. ALPRAZOLAM [Concomitant]
     Indication: ANXIETY
     Route: 048
  8. LEXAPRO [Concomitant]
     Indication: ANXIETY
     Route: 048
     Dates: start: 20090320
  9. CELEBREX [Concomitant]
     Indication: PAIN
     Dosage: UNKNOWN
     Route: 048
  10. MONOPRIL [Concomitant]
     Indication: DRUG USE FOR UNKNOWN INDICATION
     Dates: end: 20090320

REACTIONS (1)
  - HYPERTENSION [None]
